FAERS Safety Report 6816275-5 (Version None)
Quarter: 2010Q2

REPORT INFORMATION
  Report Type: 
  Country: None (occurrence: None)
  Receive Date: 20100630
  Receipt Date: 20100614
  Transmission Date: 20101027
  Serious: Yes (Life-Threatening, Hospitalization)
  Sender: FDA-Public Use
  Company Number: AMAG201000265

PATIENT
  Age: 68 Year
  Sex: Female
  Weight: 59 kg

DRUGS (9)
  1. FERAHEME [Suspect]
     Indication: IRON DEFICIENCY ANAEMIA
     Dosage: 510 MG, SINGLE, INTRAVENOUS; 120 MG, SINGLE, INTRAVENOUS
     Route: 042
     Dates: start: 20100505, end: 20100505
  2. FERAHEME [Suspect]
     Indication: IRON DEFICIENCY ANAEMIA
     Dosage: 510 MG, SINGLE, INTRAVENOUS; 120 MG, SINGLE, INTRAVENOUS
     Route: 042
     Dates: start: 20100609, end: 20100609
  3. ASPIRIN [Concomitant]
  4. AMLODIPINE [Concomitant]
  5. DOXAZOSIN (DOXAZOSIN MESILATE) [Concomitant]
  6. EPOGEN [Concomitant]
  7. LISINOPRIL (LISINOPRIL DIHYDRATE) [Concomitant]
  8. RENVELA [Concomitant]
  9. TOPROL-XL [Concomitant]

REACTIONS (9)
  - AGITATION [None]
  - ANAPHYLACTOID REACTION [None]
  - CYANOSIS [None]
  - DYSPNOEA [None]
  - HYPOTENSION [None]
  - LACTIC ACIDOSIS [None]
  - LIVEDO RETICULARIS [None]
  - OXYGEN SATURATION DECREASED [None]
  - SHUNT THROMBOSIS [None]
